FAERS Safety Report 25501108 (Version 2)
Quarter: 2025Q3

REPORT INFORMATION
  Report Type: Spontaneous
  Country: US (occurrence: US)
  Receive Date: 20250701
  Receipt Date: 20250806
  Transmission Date: 20251020
  Serious: No
  Sender: SANOFI AVENTIS
  Company Number: US-SA-2025SA183466

PATIENT
  Age: 46 Year
  Sex: Female

DRUGS (2)
  1. DUPIXENT [Suspect]
     Active Substance: DUPILUMAB
     Indication: Urticaria
     Route: 058
     Dates: start: 20250508, end: 20250508
  2. DUPIXENT [Suspect]
     Active Substance: DUPILUMAB
     Indication: Urticaria chronic
     Dosage: 300 MG, QOW
     Route: 058
     Dates: start: 202505

REACTIONS (16)
  - Drug hypersensitivity [Unknown]
  - Ocular hyperaemia [Unknown]
  - Eye pain [Unknown]
  - Oropharyngeal pain [Unknown]
  - Oral pain [Unknown]
  - Peripheral swelling [Unknown]
  - Lymph node pain [Unknown]
  - Alopecia [Unknown]
  - Productive cough [Unknown]
  - Oesophageal discomfort [Unknown]
  - Lymphadenopathy [Unknown]
  - Urticaria [Unknown]
  - Headache [Unknown]
  - Rash [Unknown]
  - Inappropriate schedule of product administration [Unknown]
  - Product use in unapproved indication [Unknown]

NARRATIVE: CASE EVENT DATE: 20250508
